FAERS Safety Report 21915057 (Version 1)
Quarter: 2023Q1

REPORT INFORMATION
  Report Type: Spontaneous
  Country: US (occurrence: US)
  Receive Date: 20230126
  Receipt Date: 20230126
  Transmission Date: 20230417
  Serious: No
  Sender: FDA-Public Use
  Company Number: US-CATALYST PHARMACEUTICALS, INC-US-CATA-22-02634

PATIENT
  Sex: Female

DRUGS (1)
  1. FIRDAPSE [Suspect]
     Active Substance: AMIFAMPRIDINE PHOSPHATE
     Indication: Myasthenic syndrome
     Dosage: 1.5 DOSAGE FORM, TID
     Route: 065

REACTIONS (5)
  - Dry mouth [Unknown]
  - Tongue discolouration [Recovered/Resolved]
  - Palpitations [Recovered/Resolved]
  - Paraesthesia oral [Recovered/Resolved]
  - Dizziness [Unknown]
